FAERS Safety Report 12651369 (Version 1)
Quarter: 2016Q3

REPORT INFORMATION
  Report Type: Report from Study
  Country: CO (occurrence: CO)
  Receive Date: 20160815
  Receipt Date: 20160815
  Transmission Date: 20161109
  Serious: Yes (Death, Hospitalization, Other)
  Sender: FDA-Public Use
  Company Number: CO-ASTELLAS-2016US031295

PATIENT
  Age: 53 Year
  Sex: Male
  Weight: 63 kg

DRUGS (1)
  1. TACROLIMUS. [Suspect]
     Active Substance: TACROLIMUS
     Indication: RENAL TRANSPLANT
     Route: 048
     Dates: start: 20150401, end: 20151013

REACTIONS (6)
  - Inflammation [Unknown]
  - Skin bacterial infection [Unknown]
  - Cardio-respiratory arrest [Fatal]
  - Erythema [Unknown]
  - Blood creatinine increased [Unknown]
  - Kidney transplant rejection [Unknown]

NARRATIVE: CASE EVENT DATE: 20151013
